FAERS Safety Report 18438435 (Version 1)
Quarter: 2020Q4

REPORT INFORMATION
  Report Type: Spontaneous
  Country: CA (occurrence: CA)
  Receive Date: 20201028
  Receipt Date: 20201028
  Transmission Date: 20210114
  Serious: Yes (Other)
  Sender: FDA-Public Use
  Company Number: CA-TEVA-2020-CA-1841950

PATIENT
  Sex: Male

DRUGS (1)
  1. PREDNISONE. [Suspect]
     Active Substance: PREDNISONE
     Indication: NEUROPATHY PERIPHERAL
     Dosage: 60 MILLIGRAM DAILY; 60MG DAILY AND SLOWLY TAPERED TO 10MG.
     Dates: start: 201712

REACTIONS (1)
  - Cerebrovascular accident [Unknown]
